FAERS Safety Report 22280456 (Version 2)
Quarter: 2023Q2

REPORT INFORMATION
  Report Type: Spontaneous
  Country: US (occurrence: US)
  Receive Date: 20230503
  Receipt Date: 20230512
  Transmission Date: 20230721
  Serious: Yes (Hospitalization)
  Sender: FDA-Public Use
  Company Number: US-KARYOPHARM-2023KPT001116

PATIENT

DRUGS (11)
  1. XPOVIO [Suspect]
     Active Substance: SELINEXOR
     Indication: Plasma cell myeloma
     Dosage: 80 MG, 2X/WEEK
     Route: 048
     Dates: start: 20230414
  2. ALLOPURINOL [Concomitant]
     Active Substance: ALLOPURINOL
  3. BASAGLAR [Concomitant]
     Active Substance: INSULIN GLARGINE
  4. DEXAMETHASONE [Concomitant]
     Active Substance: DEXAMETHASONE
  5. DOXYCYCLINE [Concomitant]
     Active Substance: DOXYCYCLINE
  6. HUMALOG [Concomitant]
     Active Substance: INSULIN LISPRO
  7. LOMOTIL [Concomitant]
     Active Substance: ATROPINE SULFATE\DIPHENOXYLATE HYDROCHLORIDE
  8. MIRTAZAPINE [Concomitant]
     Active Substance: MIRTAZAPINE
  9. ONDANSETRON [Concomitant]
     Active Substance: ONDANSETRON
  10. PROCHLORPERAZINE [Concomitant]
     Active Substance: PROCHLORPERAZINE
  11. LORAZEPAM [Concomitant]
     Active Substance: LORAZEPAM

REACTIONS (10)
  - Pyrexia [Unknown]
  - Confusional state [Unknown]
  - Asthenia [Unknown]
  - Gastrooesophageal reflux disease [Unknown]
  - Oropharyngeal pain [Unknown]
  - Chills [Unknown]
  - Sensation of foreign body [Unknown]
  - Pain in extremity [Unknown]
  - Diarrhoea [Unknown]
  - Nausea [Unknown]

NARRATIVE: CASE EVENT DATE: 20230401
